FAERS Safety Report 5347456-8 (Version None)
Quarter: 2007Q2

REPORT INFORMATION
  Report Type: 
  Country: None (occurrence: None)
  Receive Date: 20070606
  Receipt Date: 20070520
  Transmission Date: 20071010
  Serious: No
  Sender: FDA-Public Use
  Company Number: US-JNJFOC-20070505402

PATIENT
  Age: 12 Year

DRUGS (3)
  1. INVEGA [Suspect]
     Indication: AFFECTIVE DISORDER
     Route: 048
  2. INVEGA [Suspect]
     Indication: SCHIZOPHRENIA
     Route: 048
  3. COGENTIN [Concomitant]

REACTIONS (1)
  - EXTRAPYRAMIDAL DISORDER [None]
